FAERS Safety Report 9036976 (Version 1)
Quarter: 2013Q1

REPORT INFORMATION
  Report Type: Spontaneous
  Country: CO (occurrence: CO)
  Receive Date: 20130129
  Receipt Date: 20130129
  Transmission Date: 20140127
  Serious: Yes (Other)
  Sender: FDA-Public Use
  Company Number: CO-AMGEN-COLSP2013005511

PATIENT
  Age: 52 Year
  Sex: Female

DRUGS (10)
  1. ENBREL [Suspect]
     Indication: RHEUMATOID ARTHRITIS
     Dosage: 50 MG, WEEKLY
     Route: 058
     Dates: start: 2004
  2. PREDNISOLONE [Concomitant]
     Indication: RHEUMATOID ARTHRITIS
     Dosage: 2 TABLETS EACH TIME WHEN THERE WAS PAIN AND ONE TABLET AFTER THE PAIN DISSAPEARED, AS NEEDED
     Route: 065
     Dates: start: 2012
  3. SULFASALAZINE [Concomitant]
     Indication: RHEUMATOID ARTHRITIS
     Dosage: 2 TABLETS, 1X/DAY
     Route: 048
     Dates: end: 201206
  4. CALCIUM [Concomitant]
     Dosage: 600 MG, 2X/DAY
     Route: 065
     Dates: start: 2011
  5. ALENDRONATE SODIUM [Concomitant]
     Indication: CALCIUM DEFICIENCY
     Dosage: 70 MG, 2X/DAY
     Route: 065
  6. FOLIC ACID [Concomitant]
     Dosage: 1X/DAY
     Route: 065
  7. VITAMIN E                          /00110501/ [Concomitant]
     Dosage: 400 MG, 1X/DAY
     Dates: start: 2012
  8. ENALAPRIL [Concomitant]
     Dosage: 20 MG, EACH 12 HOURS
     Route: 065
  9. ASA [Concomitant]
     Dosage: 100 MG, 1X/DAY
  10. HYDROCHLOROTHIAZIDE [Concomitant]
     Dosage: 25 MG, 1X/DAY

REACTIONS (4)
  - Dengue fever [Recovered/Resolved]
  - Hypertension [Not Recovered/Not Resolved]
  - Immune system disorder [Recovered/Resolved]
  - Injection site pain [Recovered/Resolved]
